FAERS Safety Report 19291800 (Version 3)
Quarter: 2025Q3

REPORT INFORMATION
  Report Type: Spontaneous
  Country: US (occurrence: US)
  Receive Date: 20210524
  Receipt Date: 20250730
  Transmission Date: 20251021
  Serious: No
  Sender: NOVARTIS
  Company Number: NVSC2021US107640

PATIENT
  Sex: Female

DRUGS (1)
  1. MAYZENT [Suspect]
     Active Substance: SIPONIMOD
     Indication: Multiple sclerosis
     Dosage: 2 MG, QD
     Route: 048

REACTIONS (2)
  - Maternal exposure timing unspecified [Unknown]
  - Normal newborn [Unknown]
